FAERS Safety Report 8446518-6 (Version None)
Quarter: 2012Q2

REPORT INFORMATION
  Report Type: 
  Country: None (occurrence: None)
  Receive Date: 20120618
  Receipt Date: 20120613
  Transmission Date: 20120825
  Serious: Yes (Hospitalization)
  Sender: FDA-Public Use
  Company Number: SE-MERCK-1206USA02314

PATIENT
  Age: 63 Year
  Sex: Male

DRUGS (5)
  1. FOSAMAX [Suspect]
     Indication: OSTEOPOROSIS
     Route: 048
     Dates: start: 20030101, end: 20080101
  2. CELEBREX [Concomitant]
     Route: 048
  3. NEXIUM [Concomitant]
     Route: 048
  4. CITALOPRAM [Concomitant]
     Route: 065
  5. VITAMINS (UNSPECIFIED) [Concomitant]
     Route: 048

REACTIONS (1)
  - PATHOLOGICAL FRACTURE [None]
